FAERS Safety Report 8136221-4 (Version None)
Quarter: 2012Q1

REPORT INFORMATION
  Report Type: 
  Country: None (occurrence: None)
  Receive Date: 20120210
  Receipt Date: 20120202
  Transmission Date: 20120608
  Serious: Yes (Other)
  Sender: FDA-Public Use
  Company Number: 2012SP006578

PATIENT
  Sex: Female

DRUGS (1)
  1. NUVARING [Suspect]
     Indication: MATERNAL DRUGS AFFECTING FOETUS
     Dosage: TRPL
     Route: 064

REACTIONS (5)
  - CAESAREAN SECTION [None]
  - MATERNAL DRUGS AFFECTING FOETUS [None]
  - FOETAL GROWTH RESTRICTION [None]
  - UMBILICAL CORD AROUND NECK [None]
  - ARRHYTHMIA NEONATAL [None]
